FAERS Safety Report 7653040-3 (Version None)
Quarter: 2011Q3

REPORT INFORMATION
  Report Type: 
  Country: None (occurrence: None)
  Receive Date: 20110803
  Receipt Date: 20110729
  Transmission Date: 20111222
  Serious: Yes (Hospitalization)
  Sender: FDA-Public Use
  Company Number: PHHY2011IL60774

PATIENT
  Age: 61 Year
  Sex: Female

DRUGS (1)
  1. METHOTREXATE [Suspect]
     Indication: RHEUMATOID ARTHRITIS

REACTIONS (5)
  - GAIT DISTURBANCE [None]
  - JOINT SWELLING [None]
  - ARTHRALGIA [None]
  - DIARRHOEA HAEMORRHAGIC [None]
  - CLOSTRIDIUM DIFFICILE COLITIS [None]
